FAERS Safety Report 20059217 (Version 1)
Quarter: 2021Q4

REPORT INFORMATION
  Report Type: Spontaneous
  Country: CN (occurrence: None)
  Receive Date: 20211111
  Receipt Date: 20211111
  Transmission Date: 20220303
  Serious: Yes (Other)
  Sender: FDA-Public Use
  Company Number: 2021A797502

PATIENT
  Age: 13271 Day
  Sex: Male
  Weight: 80 kg

DRUGS (9)
  1. NEXIUM [Suspect]
     Active Substance: ESOMEPRAZOLE MAGNESIUM
     Indication: Abdominal pain upper
     Route: 048
     Dates: start: 20211011, end: 20211022
  2. NEXIUM [Suspect]
     Active Substance: ESOMEPRAZOLE MAGNESIUM
     Indication: Gastrointestinal disorder prophylaxis
     Route: 048
     Dates: start: 20211011, end: 20211022
  3. CEFTIZOXIME SODIUM [Suspect]
     Active Substance: CEFTIZOXIME SODIUM
     Indication: Injury
     Route: 042
     Dates: start: 20210925, end: 20211018
  4. HEPARIN CALCIUM [Concomitant]
     Active Substance: HEPARIN CALCIUM
     Indication: Thrombosis
     Dosage: 4100 IU BID
     Route: 058
     Dates: start: 20210929, end: 20211023
  5. FAMOTIDINE [Concomitant]
     Active Substance: FAMOTIDINE
     Indication: Abdominal pain upper
     Route: 042
     Dates: start: 20210925, end: 20211006
  6. STILAMIN [Concomitant]
     Indication: Pancreatic injury
     Route: 065
     Dates: start: 20210925, end: 20211010
  7. ALBUMIN HUMAN [Concomitant]
     Active Substance: ALBUMIN HUMAN
  8. FAT EMULSION AMINO ACIDS [Concomitant]
  9. UNSPECIFIED INGREDIENT [Concomitant]
     Active Substance: UNSPECIFIED INGREDIENT

REACTIONS (3)
  - Red blood cell count decreased [Recovering/Resolving]
  - Haematocrit decreased [Recovering/Resolving]
  - Haemoglobin decreased [Recovering/Resolving]

NARRATIVE: CASE EVENT DATE: 20211018
